FAERS Safety Report 11405109 (Version 1)
Quarter: 2015Q3

REPORT INFORMATION
  Report Type: Spontaneous
  Country: US (occurrence: US)
  Receive Date: 20150821
  Receipt Date: 20150821
  Transmission Date: 20151125
  Serious: Yes (Other)
  Sender: FDA-Public Use
  Company Number: US-BRISTOL-MYERS SQUIBB COMPANY-BMS-2015-056713

PATIENT
  Age: 57 Year
  Sex: Male

DRUGS (1)
  1. WARFARIN SODIUM. [Suspect]
     Active Substance: WARFARIN SODIUM
     Indication: CARDIAC FAILURE CONGESTIVE
     Route: 048

REACTIONS (1)
  - Haematoma [Unknown]
